FAERS Safety Report 25401057 (Version 2)
Quarter: 2025Q2

REPORT INFORMATION
  Report Type: Spontaneous
  Country: PL (occurrence: PL)
  Receive Date: 20250605
  Receipt Date: 20250612
  Transmission Date: 20250717
  Serious: Yes (Other)
  Sender: MERCK SHARP & DOHME LLC
  Company Number: PL-009507513-2290008

PATIENT
  Sex: Female

DRUGS (4)
  1. WINREVAIR [Suspect]
     Active Substance: SOTATERCEPT-CSRK
     Dates: start: 202501
  2. WINREVAIR [Suspect]
     Active Substance: SOTATERCEPT-CSRK
     Dates: start: 2025
  3. WINREVAIR [Suspect]
     Active Substance: SOTATERCEPT-CSRK
     Dates: start: 20250424
  4. WINREVAIR [Suspect]
     Active Substance: SOTATERCEPT-CSRK

REACTIONS (1)
  - Bronchial haemorrhage [Recovered/Resolved]

NARRATIVE: CASE EVENT DATE: 20250525
